FAERS Safety Report 10360752 (Version 2)
Quarter: 2014Q4

REPORT INFORMATION
  Report Type: Spontaneous
  Country: US (occurrence: US)
  Receive Date: 20140804
  Receipt Date: 20141015
  Transmission Date: 20150528
  Serious: Yes (Other)
  Sender: FDA-Public Use
  Company Number: US-GLAXOSMITHKLINE-A1082982A

PATIENT
  Sex: Female

DRUGS (3)
  1. ADVAIR HFA [Suspect]
     Active Substance: FLUTICASONE PROPIONATE\SALMETEROL XINAFOATE
     Indication: ASTHMA
     Dosage: PATIENT ACCIDENTALLY TOOK 2 PUFFS INSTEAD OF 1 PUFF FOR THE MORNING DOSE
     Route: 055
     Dates: start: 2004
  2. ADVAIR HFA [Suspect]
     Active Substance: FLUTICASONE PROPIONATE\SALMETEROL XINAFOATE
     Indication: CHRONIC OBSTRUCTIVE PULMONARY DISEASE
  3. TUDORZA PRESSAIR [Concomitant]
     Active Substance: ACLIDINIUM BROMIDE

REACTIONS (3)
  - Dry mouth [Recovered/Resolved]
  - Extra dose administered [Unknown]
  - Electrocardiogram QT prolonged [Recovered/Resolved]
